FAERS Safety Report 11447440 (Version 1)
Quarter: 2015Q3

REPORT INFORMATION
  Report Type: Spontaneous
  Country: US (occurrence: US)
  Receive Date: 20150902
  Receipt Date: 20150902
  Transmission Date: 20151125
  Serious: Yes (Other)
  Sender: FDA-Public Use
  Company Number: US-JNJFOC-20150814627

PATIENT

DRUGS (1)
  1. RISPERIDONE. [Suspect]
     Active Substance: RISPERIDONE
     Indication: AUTISM
     Dosage: THE MEAN DOSE OF RISPERIDONE WAS 2.47 MG (SD, 1.29).
     Route: 065

REACTIONS (19)
  - Anxiety [Unknown]
  - Dyspepsia [Unknown]
  - Somnolence [Unknown]
  - Fatigue [Unknown]
  - Rash [Unknown]
  - Vomiting [Unknown]
  - Seizure [Unknown]
  - Sleep disorder [Unknown]
  - Enuresis [Unknown]
  - Diarrhoea [Unknown]
  - Constipation [Unknown]
  - Increased appetite [Unknown]
  - Weight increased [Unknown]
  - Osteonecrosis [Unknown]
  - Salivary hypersecretion [Unknown]
  - Nausea [Unknown]
  - Rhinitis [Unknown]
  - Dry mouth [Unknown]
  - Eating disorder [Unknown]
